FAERS Safety Report 16741854 (Version 3)
Quarter: 2019Q4

REPORT INFORMATION
  Report Type: Other
  Country: CA (occurrence: CA)
  Receive Date: 20190826
  Receipt Date: 20191219
  Transmission Date: 20200122
  Serious: Yes (Death, Life-Threatening, Hospitalization)
  Sender: FDA-Public Use
  Company Number: CA-MAYNE PHARMA-2019MYN000666

PATIENT

DRUGS (8)
  1. BETAMETHASONE. [Suspect]
     Active Substance: BETAMETHASONE
     Indication: PRODUCT USED FOR UNKNOWN INDICATION
     Route: 064
  2. VANCOMYCIN HCL [Suspect]
     Active Substance: VANCOMYCIN HYDROCHLORIDE
     Indication: STENOTROPHOMONAS INFECTION
     Dosage: 15 MG/KG, QD
  3. MEROPENEM. [Suspect]
     Active Substance: MEROPENEM
     Indication: RESPIRATORY TRACT INFECTION
     Dosage: 20 MG/KG, BID
     Route: 064
  4. GENTAMICIN SULFATE. [Suspect]
     Active Substance: GENTAMICIN SULFATE
     Indication: PRODUCT USED FOR UNKNOWN INDICATION
     Dosage: 5 MG/KG, ONE EVERY 48 HOURS
     Route: 064
  5. AMPICILLIN SODIUM. [Suspect]
     Active Substance: AMPICILLIN SODIUM
     Indication: PRODUCT USED FOR UNKNOWN INDICATION
     Dosage: 50 MG/KG, EVERY 48 HOURS
  6. AMOXICILLIN. [Suspect]
     Active Substance: AMOXICILLIN
     Route: 064
  7. CEFOTAXIME [Suspect]
     Active Substance: CEFOTAXIME SODIUM
     Indication: RENAL FAILURE
     Dosage: 50 MG/KG, BID
     Route: 042
  8. ERYTHROMYCIN. [Suspect]
     Active Substance: ERYTHROMYCIN
     Indication: RESPIRATORY TRACT INFECTION
     Dosage: UNK
     Route: 064

REACTIONS (8)
  - Maternal exposure during pregnancy [Unknown]
  - Stenotrophomonas infection [Fatal]
  - Hypotonia [Unknown]
  - Renal failure neonatal [Fatal]
  - Respiratory disorder [Unknown]
  - Lethargy [Unknown]
  - Umbilical erythema [Unknown]
  - Premature baby [Unknown]
